FAERS Safety Report 14639789 (Version 2)
Quarter: 2018Q1

REPORT INFORMATION
  Report Type: Spontaneous
  Country: BR (occurrence: BR)
  Receive Date: 20180315
  Receipt Date: 20180327
  Transmission Date: 20180509
  Serious: Yes (Other)
  Sender: FDA-Public Use
  Company Number: BR-SUN PHARMACEUTICAL INDUSTRIES LTD-2018R5-165910

PATIENT
  Age: 81 Year
  Sex: Female

DRUGS (1)
  1. FEXOFENADINE [Suspect]
     Active Substance: FEXOFENADINE\FEXOFENADINE HYDROCHLORIDE
     Indication: RHINITIS ALLERGIC
     Dosage: 120 MG, QD
     Route: 048
     Dates: start: 20180226, end: 20180301

REACTIONS (7)
  - Swelling face [Recovered/Resolved]
  - Dizziness [Recovered/Resolved]
  - Dyskinesia [Recovered/Resolved]
  - Swelling [Recovered/Resolved]
  - Speech disorder [Recovered/Resolved]
  - Eye pruritus [Recovered/Resolved]
  - Eye inflammation [Not Recovered/Not Resolved]

NARRATIVE: CASE EVENT DATE: 2018
